FAERS Safety Report 6752530-5 (Version None)
Quarter: 2010Q2

REPORT INFORMATION
  Report Type: 
  Country: None (occurrence: None)
  Receive Date: 20100602
  Receipt Date: 20100528
  Transmission Date: 20101027
  Serious: Yes (Death, Life-Threatening, Hospitalization)
  Sender: FDA-Public Use
  Company Number: GR-WYE-G05770710

PATIENT
  Sex: Male
  Weight: 59 kg

DRUGS (7)
  1. TEMSIROLIMUS [Suspect]
     Indication: PANCREATIC CARCINOMA
     Route: 042
     Dates: start: 20091216
  2. ZOFRON [Concomitant]
     Route: 042
     Dates: start: 20091216
  3. ARIXTRA [Concomitant]
     Indication: THROMBOSIS
     Dosage: 5,000 IU ONCE DAILY
     Route: 023
     Dates: start: 20091209, end: 20100323
  4. FENISTIL [Concomitant]
     Route: 042
     Dates: start: 20091216
  5. DEXAMETHASONE [Concomitant]
     Route: 042
     Dates: start: 20091216
  6. GEMZAR [Suspect]
     Route: 042
     Dates: start: 20091216
  7. ZANTAC [Concomitant]
     Route: 042
     Dates: start: 20091216

REACTIONS (7)
  - HYPOXIA [None]
  - KLEBSIELLA INFECTION [None]
  - MULTI-ORGAN FAILURE [None]
  - MYOCARDIAL INFARCTION [None]
  - PNEUMONIA [None]
  - SEPSIS [None]
  - THROMBOCYTOPENIA [None]
